FAERS Safety Report 18489038 (Version 1)
Quarter: 2020Q4

REPORT INFORMATION
  Report Type: Other
  Country: CA (occurrence: CA)
  Receive Date: 20201110
  Receipt Date: 20201110
  Transmission Date: 20210114
  Serious: Yes (Other)
  Sender: FDA-Public Use
  Company Number: CA-APOTEX-2020AP021296

PATIENT
  Age: 38 Year
  Sex: Female
  Weight: 123 kg

DRUGS (2)
  1. BISOPROLOL [Concomitant]
     Active Substance: BISOPROLOL
     Indication: PRODUCT USED FOR UNKNOWN INDICATION
     Dosage: UNK
     Route: 065
  2. APO-DILTIAZ CD [Suspect]
     Active Substance: DILTIAZEM HYDROCHLORIDE
     Indication: ATRIAL FIBRILLATION
     Dosage: 240 MILLIGRAM, QD
     Route: 048

REACTIONS (3)
  - Atrial fibrillation [Unknown]
  - Product substitution issue [Unknown]
  - Heart rate increased [Unknown]
